FAERS Safety Report 20765775 (Version 1)
Quarter: 2022Q2

REPORT INFORMATION
  Report Type: Spontaneous
  Country: US (occurrence: US)
  Receive Date: 20220428
  Receipt Date: 20220428
  Transmission Date: 20220721
  Serious: No
  Sender: FDA-Public Use
  Company Number: US-BRISTOL-MYERS SQUIBB COMPANY-2022-028190

PATIENT
  Age: 90 Year
  Sex: Male
  Weight: 68.5 kg

DRUGS (9)
  1. REVLIMID [Suspect]
     Active Substance: LENALIDOMIDE
     Indication: Plasma cell myeloma
     Route: 048
  2. CLONIDINE [Concomitant]
     Active Substance: CLONIDINE
     Indication: Product used for unknown indication
  3. HCTZ 12.5mg tablets [Concomitant]
     Indication: Product used for unknown indication
  4. acyclovir 400mg tablets [Concomitant]
     Indication: Product used for unknown indication
  5. tobramycin 0.3% solution [Concomitant]
     Indication: Product used for unknown indication
  6. KCl 20mEq tablets [Concomitant]
     Indication: Product used for unknown indication
  7. calcitriol 0.25mcg capsule [Concomitant]
  8. simbrinza 1-0.2% suspension [Concomitant]
     Indication: Product used for unknown indication
     Dosage: 1-0.2% SUSPENSION
  9. metoprolol er succinate 25mg tablets [Concomitant]
     Indication: Product used for unknown indication

REACTIONS (1)
  - Dry mouth [Unknown]

NARRATIVE: CASE EVENT DATE: 20220315
